FAERS Safety Report 20979651 (Version 5)
Quarter: 2024Q2

REPORT INFORMATION
  Report Type: Report from Study
  Country: EG (occurrence: EG)
  Receive Date: 20220620
  Receipt Date: 20240504
  Transmission Date: 20240717
  Serious: No
  Sender: FDA-Public Use
  Company Number: EG-NOVARTISPH-NVSC2022EG138255

PATIENT
  Sex: Female

DRUGS (1)
  1. GLIVEC [Suspect]
     Active Substance: IMATINIB MESYLATE
     Indication: Chronic myeloid leukaemia
     Dosage: 400 MG, QD
     Route: 048
     Dates: start: 201905, end: 20220602

REACTIONS (1)
  - Maternal exposure before pregnancy [Unknown]
